FAERS Safety Report 6486461-5 (Version None)
Quarter: 2009Q4

REPORT INFORMATION
  Report Type: 
  Country: None (occurrence: None)
  Receive Date: 20091210
  Receipt Date: 20091130
  Transmission Date: 20100525
  Serious: Yes (Hospitalization)
  Sender: FDA-Public Use
  Company Number: SE-KINGPHARMUSA00001-K200901494

PATIENT
  Age: 68 Year
  Sex: Male

DRUGS (16)
  1. ALTACE [Suspect]
     Indication: ESSENTIAL HYPERTENSION
     Dosage: 10 MG, QD
     Route: 048
     Dates: end: 20081014
  2. SPIRONOLACTONE [Suspect]
     Indication: ESSENTIAL HYPERTENSION
     Dosage: 25 MG, QD
     Route: 048
     Dates: end: 20081014
  3. TRAMADOL HCL [Concomitant]
  4. ACETAMINOPHEN [Concomitant]
  5. LIPITOR [Concomitant]
  6. INSULATARD [Concomitant]
  7. NULYTELY [Concomitant]
  8. BUDESONIDE [Concomitant]
  9. ACETYLCYSTEINE [Concomitant]
  10. FELODIPINE [Concomitant]
     Dosage: UNK
  11. LACTULOSE [Concomitant]
  12. ATROVENT [Concomitant]
  13. FURIX [Concomitant]
  14. NOVORAPID [Concomitant]
  15. SODIUM PICOSULFATE [Concomitant]
  16. OXYCODONE [Concomitant]

REACTIONS (3)
  - BACK PAIN [None]
  - BLOOD CREATININE INCREASED [None]
  - FATIGUE [None]
